FAERS Safety Report 12086322 (Version 1)
Quarter: 2016Q1

REPORT INFORMATION
  Report Type: Spontaneous
  Country: US (occurrence: US)
  Receive Date: 20160217
  Receipt Date: 20160217
  Transmission Date: 20160526
  Serious: No
  Sender: FDA-Public Use
  Company Number: US-TAKEDA-2015TUS007943

PATIENT
  Age: 85 Year
  Sex: Female

DRUGS (3)
  1. LISINOPRIL TABLETS [Suspect]
     Active Substance: LISINOPRIL
     Indication: HYPERTENSION
  2. VOLTAREN [Suspect]
     Active Substance: DICLOFENAC SODIUM
     Indication: ARTHRITIS
  3. PREVACID [Suspect]
     Active Substance: LANSOPRAZOLE
     Indication: GASTROOESOPHAGEAL REFLUX DISEASE
     Dosage: 4 G, BID
     Route: 061
     Dates: start: 20150602, end: 20150602

REACTIONS (7)
  - Hyperhidrosis [Recovered/Resolved]
  - Therapeutic response unexpected [Unknown]
  - Feeling abnormal [Recovered/Resolved]
  - Product use issue [Unknown]
  - Thirst [Recovered/Resolved]
  - Terminal insomnia [Recovered/Resolved]
  - Underdose [Unknown]

NARRATIVE: CASE EVENT DATE: 20150602
